FAERS Safety Report 9441728 (Version 3)
Quarter: 2014Q2

REPORT INFORMATION
  Report Type: Report from Study
  Country: US (occurrence: US)
  Receive Date: 20130806
  Receipt Date: 20140521
  Transmission Date: 20141212
  Serious: Yes (Hospitalization)
  Sender: FDA-Public Use
  Company Number: US-PFIZER INC-US-WYE-H18109210

PATIENT
  Age: 38 Year
  Sex: Female

DRUGS (16)
  1. TEMSIROLIMUS [Suspect]
     Indication: BREAST CANCER
     Dosage: 8 MG, WEEKLY
     Route: 042
     Dates: start: 20100622, end: 20111020
  2. NERATINIB [Suspect]
     Indication: BREAST CANCER
     Dosage: 240 MG, DAILY
     Route: 048
     Dates: start: 20100622, end: 20111113
  3. COZAAR [Concomitant]
     Dosage: UNK
     Route: 065
     Dates: start: 20090404
  4. VENLAFAXINE HYDROCHLORIDE [Concomitant]
     Dosage: UNK
     Route: 065
     Dates: start: 20060201
  5. AMBIEN [Concomitant]
     Dosage: UNK
     Route: 065
     Dates: start: 20050125
  6. LASIX [Concomitant]
     Dosage: UNK
  7. VITAMIN A [Concomitant]
     Dosage: UNK
  8. CALCIUM CARBONATE W/VITAMIN D NOS [Concomitant]
     Dosage: UNK
  9. SENNA [Concomitant]
     Dosage: UNK
  10. LIDOCAINE [Concomitant]
     Dosage: UNK
  11. LACTULOSE [Concomitant]
     Dosage: UNK
  12. COLACE [Concomitant]
     Dosage: UNK
  13. BISACODYL [Concomitant]
     Dosage: UNK
  14. DOXYCYCLINE [Concomitant]
     Dosage: UNK
  15. IBUPROFEN [Concomitant]
     Dosage: UNK
  16. ACETAMINOPHEN [Concomitant]
     Dosage: UNK

REACTIONS (1)
  - Hypertension [Recovered/Resolved]
